FAERS Safety Report 12981401 (Version 1)
Quarter: 2016Q4

REPORT INFORMATION
  Report Type: Spontaneous
  Country: US (occurrence: US)
  Receive Date: 20161129
  Receipt Date: 20161129
  Transmission Date: 20170207
  Serious: Yes (Hospitalization)
  Sender: FDA-Public Use
  Company Number: US-BEH-2016075609

PATIENT
  Age: 56 Year
  Sex: Female

DRUGS (2)
  1. DESMOPRESSIN (INN) [Suspect]
     Active Substance: DESMOPRESSIN
     Indication: EPISTAXIS
  2. DESMOPRESSIN (INN) [Suspect]
     Active Substance: DESMOPRESSIN
     Indication: VON WILLEBRAND^S DISEASE

REACTIONS (6)
  - Hallucination, visual [Recovering/Resolving]
  - Hyponatraemic seizure [Recovering/Resolving]
  - Somnolence [Recovering/Resolving]
  - Confusional state [Recovering/Resolving]
  - Lethargy [Recovering/Resolving]
  - Oral contusion [Recovering/Resolving]
